FAERS Safety Report 19288949 (Version 1)
Quarter: 2021Q2

REPORT INFORMATION
  Report Type: Spontaneous
  Country: US (occurrence: US)
  Receive Date: 20210521
  Receipt Date: 20210521
  Transmission Date: 20210717
  Serious: No
  Sender: FDA-Public Use
  Company Number: US-MYLANLABS-2021M1026143

PATIENT
  Sex: Female

DRUGS (1)
  1. ESTRADIOL TRANSDERMAL SYSTEM [Suspect]
     Active Substance: ESTRADIOL
     Indication: MENOPAUSE
     Dosage: UNK UNK, BID (TWICE A WEEK)
     Route: 062

REACTIONS (4)
  - Hot flush [Unknown]
  - Drug ineffective [Unknown]
  - Irritability [Unknown]
  - Insomnia [Unknown]
